FAERS Safety Report 7549838-2 (Version None)
Quarter: 2011Q2

REPORT INFORMATION
  Report Type: 
  Country: None (occurrence: None)
  Receive Date: 20110615
  Receipt Date: 20090515
  Transmission Date: 20111010
  Serious: Yes (Death, Hospitalization)
  Sender: FDA-Public Use
  Company Number: PHHY2009GB16358

PATIENT
  Sex: Male

DRUGS (12)
  1. CLOZAPINE [Suspect]
     Indication: HALLUCINATION
  2. OMEPRAZOLE [Concomitant]
  3. AMITRIPTYLINE HYDROCHLORIDE [Concomitant]
  4. CO-CARELDOPA [Concomitant]
     Dosage: 125 MG, TID
     Route: 048
  5. PRAVASTATIN [Concomitant]
  6. CLOZAPINE [Suspect]
     Indication: SCHIZOPHRENIA
     Dosage: 37.5 MG, UNK
     Route: 048
     Dates: start: 20080520
  7. CLOZAPINE [Suspect]
     Indication: DEMENTIA WITH LEWY BODIES
  8. ASPIRIN [Concomitant]
  9. RIVASTIGMINE [Concomitant]
     Indication: CONFUSIONAL STATE
     Dosage: 1.5 MG, BID
     Dates: start: 20090201
  10. RIVASTIGMINE [Concomitant]
     Indication: DEMENTIA WITH LEWY BODIES
  11. RIVASTIGMINE [Concomitant]
     Indication: HALLUCINATION
  12. ATENOLOL [Concomitant]
     Dosage: 25 MG, QD

REACTIONS (5)
  - LOWER RESPIRATORY TRACT INFECTION [None]
  - SOMNOLENCE [None]
  - MALAISE [None]
  - PARKINSON'S DISEASE [None]
  - PNEUMONIA ASPIRATION [None]
